FAERS Safety Report 5536414-6 (Version None)
Quarter: 2007Q4

REPORT INFORMATION
  Report Type: 
  Country: None (occurrence: None)
  Receive Date: 20071204
  Receipt Date: 20071117
  Transmission Date: 20080405
  Serious: Yes (Death, Hospitalization)
  Sender: FDA-Public Use
  Company Number: 2004S1000265

PATIENT
  Age: 76 Year
  Sex: Male
  Weight: 71.9858 kg

DRUGS (3)
  1. SORIATANE [Suspect]
     Indication: MYCOSIS FUNGOIDES
     Dosage: 10 MG;QD;PO; 25 MG;QD;PO
     Route: 048
  2. SORIATANE [Suspect]
     Indication: MYCOSIS FUNGOIDES
     Dosage: 10 MG;QD;PO; 25 MG;QD;PO
     Route: 048
  3. SORIATANE [Suspect]
     Indication: MYCOSIS FUNGOIDES
     Dosage: 10 MG;QD;PO; 25 MG;QD;PO
     Route: 048
     Dates: start: 20031001

REACTIONS (3)
  - CONDITION AGGRAVATED [None]
  - MYCOSIS FUNGOIDES [None]
  - VITH NERVE PARALYSIS [None]
